FAERS Safety Report 17173971 (Version 1)
Quarter: 2019Q4

REPORT INFORMATION
  Report Type: Report from Study
  Country: ES (occurrence: ES)
  Receive Date: 20191219
  Receipt Date: 20191219
  Transmission Date: 20200122
  Serious: Yes (Other)
  Sender: FDA-Public Use
  Company Number: ES-ROCHE-2498962

PATIENT
  Age: 52 Year
  Sex: Female

DRUGS (7)
  1. ATEZOLIZUMAB. [Suspect]
     Active Substance: ATEZOLIZUMAB
     Indication: METASTATIC MALIGNANT MELANOMA
     Dosage: ON 05/DEC/2019, AT 15:23 HOURS; MOST RECENT DOSE (840 MG) OF ATEZOLIZUMAB WAS GIVEN.
     Route: 042
     Dates: start: 20190912
  2. SIMVASTATINA [Concomitant]
     Active Substance: SIMVASTATIN
     Indication: DYSLIPIDAEMIA
     Route: 048
     Dates: start: 2009
  3. OMEPRAZOL [OMEPRAZOLE] [Concomitant]
     Active Substance: OMEPRAZOLE
     Indication: PROPHYLAXIS
     Route: 048
  4. KEPPRA [Concomitant]
     Active Substance: LEVETIRACETAM
     Indication: PROPHYLAXIS
     Route: 048
     Dates: start: 20190628
  5. FLUTICASONA [FLUTICASONE] [Concomitant]
     Dosage: DOSE: UNKNOWN
     Route: 061
     Dates: start: 20190909, end: 20191022
  6. COBIMETINIB. [Suspect]
     Active Substance: COBIMETINIB
     Indication: METASTATIC MALIGNANT MELANOMA
     Dosage: ON 22/OCT/2019, MOST RECENT DOSE (40 MG) OF COBIMETINIB WAS GIVEN.
     Route: 048
     Dates: start: 20190807
  7. VEMURAFENIB. [Suspect]
     Active Substance: VEMURAFENIB
     Indication: METASTATIC MALIGNANT MELANOMA
     Dosage: ON 09/DEC/2019, MOST RECENT DOSE (720 MG) OF VEMURAFENIB WAS GIVEN.
     Route: 048
     Dates: start: 20190807

REACTIONS (1)
  - Malignant melanoma [Recovered/Resolved]

NARRATIVE: CASE EVENT DATE: 20191210
